FAERS Safety Report 5658776-1 (Version None)
Quarter: 2008Q1

REPORT INFORMATION
  Report Type: 
  Country: None (occurrence: None)
  Receive Date: 20080310
  Receipt Date: 20070419
  Transmission Date: 20080703
  Serious: No
  Sender: FDA-Public Use
  Company Number: US-BAYER-200711193BCC

PATIENT
  Age: 30 Year
  Sex: Male
  Weight: 86 kg

DRUGS (3)
  1. ALEVE [Suspect]
     Indication: DRUG USE FOR UNKNOWN INDICATION
     Dosage: UNIT DOSE: 220 MG
     Route: 048
     Dates: start: 20070419
  2. ADDERALL 10 [Concomitant]
  3. PROPECIA [Concomitant]

REACTIONS (4)
  - ERYTHEMA [None]
  - HYPERSENSITIVITY [None]
  - PARAESTHESIA [None]
  - PRURITUS [None]
